FAERS Safety Report 17301379 (Version 1)
Quarter: 2020Q1

REPORT INFORMATION
  Report Type: Spontaneous
  Country: US (occurrence: US)
  Receive Date: 20200120
  Receipt Date: 20200120
  Transmission Date: 20200409
  Serious: Yes (Life-Threatening, Hospitalization)
  Sender: FDA-Public Use
  Company Number: None

PATIENT
  Age: 47 Year
  Sex: Male
  Weight: 127 kg

DRUGS (1)
  1. BLACK RHINO (DIETARY SUPPLEMENT) [Suspect]
     Active Substance: DIETARY SUPPLEMENT

REACTIONS (3)
  - Ischaemic stroke [None]
  - Hemiparesis [None]
  - Hypertension [None]

NARRATIVE: CASE EVENT DATE: 20200119
